FAERS Safety Report 13119026 (Version 1)
Quarter: 2017Q1

REPORT INFORMATION
  Report Type: Other
  Country: US (occurrence: US)
  Receive Date: 20170116
  Receipt Date: 20170116
  Transmission Date: 20170428
  Serious: Yes (Death)
  Sender: FDA-Public Use
  Company Number: US-LEHIGH_VALLEY-USA-POI0580201700003

PATIENT
  Age: 36 Year
  Sex: Male

DRUGS (9)
  1. TADALAFIL [Suspect]
     Active Substance: TADALAFIL
     Dates: end: 2015
  2. AMLODIPINE [Suspect]
     Active Substance: AMLODIPINE BESYLATE
     Dates: end: 2015
  3. POTASSIUM CHLORIDE ORAL SOLUTION [Suspect]
     Active Substance: POTASSIUM CHLORIDE
     Dates: end: 2015
  4. GABAPENTIN. [Suspect]
     Active Substance: GABAPENTIN
     Dates: end: 2015
  5. ACETAMINOPHEN. [Suspect]
     Active Substance: ACETAMINOPHEN
     Dates: end: 2015
  6. LISINOPRIL. [Suspect]
     Active Substance: LISINOPRIL
     Dates: end: 2015
  7. LAMOTRIGINE. [Suspect]
     Active Substance: LAMOTRIGINE
     Dates: end: 2015
  8. RIVAROXABAN [Suspect]
     Active Substance: RIVAROXABAN
     Dates: end: 2015
  9. FUROSEMIDE. [Suspect]
     Active Substance: FUROSEMIDE
     Dates: end: 2015

REACTIONS (3)
  - Completed suicide [Fatal]
  - Cardiac arrest [Fatal]
  - Respiratory arrest [Fatal]

NARRATIVE: CASE EVENT DATE: 2015
